FAERS Safety Report 8787013 (Version 1)
Quarter: 2012Q4

REPORT INFORMATION
  Report Type: 
  Country: US (occurrence: US)
  Receive Date: 20120914
  Receipt Date: 20120914
  Transmission Date: 20130627
  Serious: No
  Sender: FDA-Public Use
  Company Number: US-VERTEX PHARMACEUTICAL INC.-AE-2012-009748

PATIENT

DRUGS (12)
  1. INCIVEK [Suspect]
     Indication: HEPATITIS C
     Route: 048
     Dates: start: 20120627
  2. RIBAVIRIN [Concomitant]
     Indication: HEPATITIS C
     Route: 048
     Dates: start: 20120627
  3. PEGASYS [Concomitant]
     Indication: HEPATITIS C
     Route: 058
     Dates: start: 20120626
  4. LISINOPRIL [Concomitant]
     Indication: HYPERTENSION
     Route: 048
  5. AMLODIPINE [Concomitant]
     Indication: HYPERTENSION
     Route: 048
  6. HCTZ [Concomitant]
     Indication: HYPERTENSION
     Route: 048
  7. GLIPIZIDE [Concomitant]
     Indication: DIABETES MELLITUS
     Route: 048
  8. ALBUTEROL INHALER [Concomitant]
     Indication: ASTHMA
  9. ADVAIR [Concomitant]
     Indication: ASTHMA
  10. IBUPROFEN [Concomitant]
     Indication: PAIN
     Route: 048
  11. TRIAMTERENE [Concomitant]
  12. FLUTICASONE [Concomitant]

REACTIONS (5)
  - Dyspepsia [Not Recovered/Not Resolved]
  - Anorectal discomfort [Not Recovered/Not Resolved]
  - Proctalgia [Not Recovered/Not Resolved]
  - Rash generalised [Not Recovered/Not Resolved]
  - Anal pruritus [Unknown]
